FAERS Safety Report 12111461 (Version 5)
Quarter: 2016Q1

REPORT INFORMATION
  Report Type: Report from Study
  Country: US (occurrence: US)
  Receive Date: 20160224
  Receipt Date: 20160329
  Transmission Date: 20160526
  Serious: Yes (Hospitalization)
  Sender: FDA-Public Use
  Company Number: US-ACTELION-A-NJ2016-131011

PATIENT
  Age: 68 Year
  Sex: Female

DRUGS (2)
  1. VELETRI [Suspect]
     Active Substance: EPOPROSTENOL
     Indication: PULMONARY HYPERTENSION
     Dosage: 10.25 NG/KG, PER MIN
     Route: 042
     Dates: start: 20160127
  2. ADCIRCA [Concomitant]
     Active Substance: TADALAFIL

REACTIONS (16)
  - Pain in extremity [Unknown]
  - Visual impairment [Recovering/Resolving]
  - Device related infection [Unknown]
  - Sputum discoloured [Unknown]
  - Migraine [Unknown]
  - Diarrhoea [Unknown]
  - Pyrexia [Unknown]
  - Flushing [Unknown]
  - Abdominal discomfort [Unknown]
  - Upper respiratory tract infection [Unknown]
  - Hypoaesthesia [Unknown]
  - Dyspepsia [Unknown]
  - Headache [Unknown]
  - Pain in jaw [Unknown]
  - Nasal discharge discolouration [Unknown]
  - Nausea [Unknown]
